FAERS Safety Report 15892920 (Version 1)
Quarter: 2019Q1

REPORT INFORMATION
  Report Type: Report from Study
  Country: US (occurrence: US)
  Receive Date: 20190130
  Receipt Date: 20190130
  Transmission Date: 20190417
  Serious: No
  Sender: FDA-Public Use
  Company Number: US-EXELIXIS-CABO-18015521

PATIENT
  Age: 91 Year
  Sex: Female

DRUGS (1)
  1. CABOMETYX [Suspect]
     Active Substance: CABOZANTINIB S-MALATE
     Indication: RENAL CANCER
     Dosage: UNK UNK, QD
     Route: 048
     Dates: start: 201803

REACTIONS (7)
  - Nausea [Unknown]
  - Nasal discomfort [Unknown]
  - Asthenia [Unknown]
  - Diarrhoea [Not Recovered/Not Resolved]
  - Oral pain [Unknown]
  - Oedema peripheral [Unknown]
  - Dehydration [Unknown]

NARRATIVE: CASE EVENT DATE: 2018
